FAERS Safety Report 21754779 (Version 1)
Quarter: 2022Q4

REPORT INFORMATION
  Report Type: Spontaneous
  Country: US (occurrence: None)
  Receive Date: 20221219
  Receipt Date: 20221219
  Transmission Date: 20230113
  Serious: No
  Sender: FDA-Public Use
  Company Number: None

PATIENT
  Sex: Female

DRUGS (2)
  1. VELETRI [Suspect]
     Active Substance: EPOPROSTENOL
  2. CASSETTE MEDI RESERVOIR [Concomitant]
     Route: 042
     Dates: start: 20200311

REACTIONS (4)
  - Recalled product administered [None]
  - Dyspnoea [None]
  - Device malfunction [None]
  - Device alarm issue [None]
